FAERS Safety Report 12783201 (Version 1)
Quarter: 2016Q3

REPORT INFORMATION
  Report Type: Spontaneous
  Country: US (occurrence: US)
  Receive Date: 20160927
  Receipt Date: 20160927
  Transmission Date: 20161109
  Serious: Yes (Other)
  Sender: FDA-Public Use
  Company Number: None

PATIENT
  Age: 46 Year
  Sex: Female
  Weight: 59.4 kg

DRUGS (11)
  1. ACETYL L CARMITINE [Concomitant]
  2. ANGSTROM MAGNESIUM [Concomitant]
  3. CIPROFLOXACIN HCL 500 MG TAB [Suspect]
     Active Substance: CIPROFLOXACIN HYDROCHLORIDE
     Indication: SINUSITIS
     Route: 048
     Dates: start: 20160611, end: 20160621
  4. COLLAGEN [Concomitant]
     Active Substance: COLLAGEN
  5. TRACE MINERALS [Concomitant]
  6. FRUIT ANTHOCYANINS [Concomitant]
  7. LITHIUM. [Concomitant]
     Active Substance: LITHIUM
  8. ZYRTEC [Concomitant]
     Active Substance: CETIRIZINE HYDROCHLORIDE
  9. GLUTATHIONE [Concomitant]
     Active Substance: GLUTATHIONE
  10. FISH OIL [Concomitant]
     Active Substance: FISH OIL
  11. ALPHA LIPOIC ACID [Concomitant]
     Active Substance: .ALPHA.-LIPOIC ACID

REACTIONS (6)
  - Impaired quality of life [None]
  - Visual impairment [None]
  - Neuropathy peripheral [None]
  - Pain [None]
  - Diplopia [None]
  - Abasia [None]

NARRATIVE: CASE EVENT DATE: 20160624
